FAERS Safety Report 7156959-5 (Version None)
Quarter: 2010Q4

REPORT INFORMATION
  Report Type: 
  Country: None (occurrence: None)
  Receive Date: 20101214
  Receipt Date: 20100121
  Transmission Date: 20110411
  Serious: No
  Sender: FDA-Public Use
  Company Number: US-ASTRAZENECA-2010SE02495

PATIENT
  Age: 636 Month
  Sex: Male
  Weight: 86.2 kg

DRUGS (1)
  1. CRESTOR [Suspect]
     Route: 048
     Dates: start: 20090901

REACTIONS (2)
  - CALCULUS BLADDER [None]
  - DRUG DOSE OMISSION [None]
